FAERS Safety Report 5080690-3 (Version None)
Quarter: 2006Q3

REPORT INFORMATION
  Report Type: 
  Country: None (occurrence: None)
  Receive Date: 20060809
  Receipt Date: 20060727
  Transmission Date: 20061208
  Serious: Yes (Death, Life-Threatening, Hospitalization, Other)
  Sender: FDA-Public Use
  Company Number: 2006084841

PATIENT
  Age: 30 Year
  Sex: Male
  Weight: 97 kg

DRUGS (14)
  1. ZYVOX [Suspect]
     Indication: STAPHYLOCOCCAL SEPSIS
     Dosage: 1200 MG (2 IN 1 D), INTRAVENOUS
     Route: 042
     Dates: start: 20060619
  2. MIDAZOLAM HYDROCHLORIDE [Suspect]
     Indication: SEDATION
     Dosage: 660 MG (6 TIMES), INTRAVENOUS
     Route: 042
     Dates: start: 20060606, end: 20060628
  3. HALOPERIDOL [Suspect]
     Indication: SEDATION
     Dosage: 20 MG (1 IN 1 D), INTRAVENOUS
     Route: 042
     Dates: start: 20060607, end: 20060629
  4. DEXMEDETOMIDINE (DEXMEDETOMIDINE) [Suspect]
     Indication: SEDATION
     Dosage: 1600 MICROG (8 TIMES), INTRAVENOUS
     Route: 042
     Dates: start: 20060628, end: 20060703
  5. VANCOMYCIN [Concomitant]
  6. PRODIF (FOSFLUCONAZOLE) [Concomitant]
  7. GENTACIN (GENTAMICIN SULFATE) [Concomitant]
  8. CLINDAMYCIN HCL [Concomitant]
  9. FIRSTCIN (CEFOZOPRAN HYDROCHLORIDE) [Concomitant]
  10. MEROPEN (MEROPENEM) [Concomitant]
  11. LEPETAN (BUPRENORPHINE HYDROCHLORIDE) [Concomitant]
  12. MIRACLID (ULINASTATIN) [Concomitant]
  13. FOY (GABEXATE MESILATE) [Concomitant]
  14. TARGOCID [Concomitant]

REACTIONS (13)
  - AGITATION [None]
  - EMBOLISM [None]
  - HAEMORRHAGE [None]
  - LOSS OF CONSCIOUSNESS [None]
  - PANCREATITIS ACUTE [None]
  - PARKINSONISM [None]
  - RENAL IMPAIRMENT [None]
  - RESPIRATORY DEPRESSION [None]
  - RESTLESSNESS [None]
  - RETROPERITONEAL ABSCESS [None]
  - RETROPERITONEAL HAEMORRHAGE [None]
  - SPLEEN DISORDER [None]
  - UNRESPONSIVE TO STIMULI [None]
